FAERS Safety Report 10081213 (Version 1)
Quarter: 2014Q2

REPORT INFORMATION
  Report Type: Spontaneous
  Country: US (occurrence: US)
  Receive Date: 20140416
  Receipt Date: 20140416
  Transmission Date: 20141212
  Serious: No
  Sender: FDA-Public Use
  Company Number: US-PFIZER INC-2014103348

PATIENT
  Sex: 0

DRUGS (1)
  1. ADVIL [Suspect]
     Dosage: NORMALLY TAKES BETWEEN 4 AND 10 PILLS A DAY

REACTIONS (3)
  - Overdose [Unknown]
  - Dysgeusia [Unknown]
  - Product coating issue [Unknown]
